FAERS Safety Report 14323108 (Version 2)
Quarter: 2018Q1

REPORT INFORMATION
  Report Type: Spontaneous
  Country: FR (occurrence: FR)
  Receive Date: 20171226
  Receipt Date: 20180108
  Transmission Date: 20180509
  Serious: Yes (Other)
  Sender: FDA-Public Use
  Company Number: FR-009507513-1712FRA009538

PATIENT
  Age: 81 Year
  Sex: Male

DRUGS (1)
  1. CELESTENE 4MG/1ML [Suspect]
     Active Substance: BETAMETHASONE
     Dosage: UNK
     Dates: start: 20171216

REACTIONS (6)
  - Product use complaint [Unknown]
  - Product container issue [Unknown]
  - Product physical issue [Unknown]
  - Off label use [Unknown]
  - Haemorrhage [Unknown]
  - Injury associated with device [Unknown]

NARRATIVE: CASE EVENT DATE: 20171216
